FAERS Safety Report 8477404 (Version 11)
Quarter: 2014Q3

REPORT INFORMATION
  Report Type: Spontaneous
  Country: GB (occurrence: GB)
  Receive Date: 20120327
  Receipt Date: 20140702
  Transmission Date: 20150326
  Serious: Yes (Other)
  Sender: FDA-Public Use
  Company Number: GB-US-EMD SERONO, INC.-7120627

PATIENT
  Sex: Female
  Weight: 60 kg

DRUGS (1)
  1. REBIF [Suspect]
     Active Substance: INTERFERON BETA-1A
     Indication: MULTIPLE SCLEROSIS
     Dates: start: 2007

REACTIONS (9)
  - Haemolytic uraemic syndrome [Recovering/Resolving]
  - Malignant hypertension [Unknown]
  - Decreased appetite [Unknown]
  - Thrombotic microangiopathy [Unknown]
  - Weight decreased [Unknown]
  - Thrombotic thrombocytopenic purpura [Unknown]
  - Renal failure acute [Unknown]
  - Pulmonary oedema [Unknown]
  - Hypertension [Unknown]

NARRATIVE: CASE EVENT DATE: 2010
